FAERS Safety Report 23570937 (Version 2)
Quarter: 2024Q1

REPORT INFORMATION
  Report Type: Spontaneous
  Country: US (occurrence: US)
  Receive Date: 20240227
  Receipt Date: 20240306
  Transmission Date: 20240410
  Serious: No
  Sender: FDA-Public Use
  Company Number: US-PFIZER INC-202400049795

PATIENT
  Age: 65 Year
  Sex: Female

DRUGS (1)
  1. METHOTREXATE SODIUM [Suspect]
     Active Substance: METHOTREXATE SODIUM
     Dosage: UNK

REACTIONS (6)
  - Drug hypersensitivity [Unknown]
  - Feeling abnormal [Unknown]
  - Bronchitis [Unknown]
  - Influenza [Unknown]
  - Respiratory disorder [Unknown]
  - Cough [Unknown]
